FAERS Safety Report 4266850-X (Version None)
Quarter: 2004Q1

REPORT INFORMATION
  Report Type: 
  Country: None (occurrence: None)
  Receive Date: 20040108
  Receipt Date: 20031117
  Transmission Date: 20041129
  Serious: Yes (Hospitalization, Disabling)
  Sender: FDA-Public Use
  Company Number: WAES 0311USA02216

PATIENT
  Age: 58 Year
  Sex: Female

DRUGS (6)
  1. FOSAMAX [Concomitant]
     Route: 048
  2. SYNTHROID [Concomitant]
  3. PRILOSEC [Concomitant]
  4. VIOXX [Suspect]
     Indication: TENDONITIS
     Route: 048
     Dates: start: 20000824, end: 20000828
  5. VIOXX [Suspect]
     Indication: ARTHRALGIA
     Route: 048
     Dates: start: 20000824, end: 20000828
  6. ZOCOR [Concomitant]
     Route: 048

REACTIONS (15)
  - ACUTE MYOCARDIAL INFARCTION [None]
  - AKINESIA [None]
  - CARDIAC DISORDER [None]
  - CORONARY ARTERY ATHEROSCLEROSIS [None]
  - CORONARY ARTERY DISEASE [None]
  - DIVERTICULUM [None]
  - DIVERTICULUM INTESTINAL [None]
  - DIZZINESS [None]
  - EMOTIONAL DISORDER [None]
  - HYPERCHOLESTEROLAEMIA [None]
  - HYPOTHYROIDISM [None]
  - INJURY [None]
  - IRRITABLE BOWEL SYNDROME [None]
  - MYOCARDIAL INFARCTION [None]
  - OSTEOPOROSIS [None]
